FAERS Safety Report 5619409-3 (Version None)
Quarter: 2008Q1

REPORT INFORMATION
  Report Type: 
  Country: None (occurrence: None)
  Receive Date: 20080114
  Receipt Date: 20070209
  Transmission Date: 20080703
  Serious: Yes (Other)
  Sender: FDA-Public Use
  Company Number: A03200701285

PATIENT
  Age: 57 Year
  Sex: Male
  Weight: 101.15 kg

DRUGS (9)
  1. PLAVIX [Suspect]
     Indication: CARDIOVASCULAR EVENT PROPHYLAXIS
     Dosage: 75 MG QD - ORAL
     Route: 048
     Dates: start: 19980101
  2. PLAVIX [Suspect]
     Indication: CEREBROVASCULAR ACCIDENT
     Dosage: 75 MG QD - ORAL
     Route: 048
     Dates: start: 19980101
  3. PLAVIX [Suspect]
     Indication: PLATELET DISORDER
     Dosage: 75 MG QD - ORAL
     Route: 048
     Dates: start: 19980101
  4. ACETYLSALICYLIC ACID SRT [Concomitant]
  5. ISOPHANE INSULIN [Concomitant]
  6. INSULIN HUMAN [Concomitant]
  7. ISOSORBIDE MONONITRATE [Concomitant]
  8. GLIMEPIRIDE [Concomitant]
  9. METOPROLOL TARTRATE [Concomitant]

REACTIONS (2)
  - CEREBROVASCULAR ACCIDENT [None]
  - COUGH [None]
